FAERS Safety Report 8391618-2 (Version None)
Quarter: 2012Q2

REPORT INFORMATION
  Report Type: 
  Country: None (occurrence: None)
  Receive Date: 20120529
  Receipt Date: 20120518
  Transmission Date: 20120825
  Serious: Yes (Life-Threatening, Hospitalization)
  Sender: FDA-Public Use
  Company Number: FR-PFIZER INC-2008092294

PATIENT
  Age: 35 Year
  Sex: Male
  Weight: 83 kg

DRUGS (6)
  1. EMEND [Concomitant]
     Indication: COLORECTAL CANCER METASTATIC
     Dosage: UNSPECIFIED DOSE FOR 4 DAYS, EVERY 15 DAYS
     Route: 042
     Dates: start: 20080904, end: 20081009
  2. FLUOROURACIL [Concomitant]
     Dosage: 1000 MG/M2 FOR 4 DAYS, EVERY 15 DAYS
     Route: 042
     Dates: start: 20070505, end: 20081009
  3. ERBITUX [Concomitant]
     Route: 042
     Dates: start: 20070801, end: 20081009
  4. ELOXATIN [Suspect]
     Indication: COLORECTAL CANCER METASTATIC
     Dosage: 25 MG/M2 FOR 4 DAYS,EVERY 15 DAYS
     Route: 042
     Dates: start: 20070505, end: 20081009
  5. LEVOLEUCOVORIN CALCIUM [Suspect]
     Indication: COLORECTAL CANCER METASTATIC
     Dosage: 400 MG/M2 FOR 4 DAYS, EVERY 15 DAYS
     Route: 042
     Dates: start: 20070505, end: 20081009
  6. IRINOTECAN HCL [Suspect]
     Indication: COLORECTAL CANCER METASTATIC
     Dosage: UNSPECIFIED DOSE FOR 4 DAYS, EVERY 15 DAYS
     Route: 042
     Dates: start: 20080904, end: 20081009

REACTIONS (10)
  - HAEMOLYTIC ANAEMIA [None]
  - COMA [None]
  - SHOCK [None]
  - THROMBOCYTOPENIA [None]
  - APLASIA PURE RED CELL [None]
  - HAEMOLYSIS [None]
  - RENAL FAILURE ACUTE [None]
  - COOMBS DIRECT TEST POSITIVE [None]
  - MULTI-ORGAN FAILURE [None]
  - COOMBS POSITIVE HAEMOLYTIC ANAEMIA [None]
